FAERS Safety Report 7218896-7 (Version None)
Quarter: 2011Q1

REPORT INFORMATION
  Report Type: 
  Country: None (occurrence: None)
  Receive Date: 20110110
  Receipt Date: 20110106
  Transmission Date: 20110831
  Serious: Yes (Hospitalization, Other)
  Sender: FDA-Public Use
  Company Number: US-MERCK-0805USA00753

PATIENT
  Age: 57 Year
  Sex: Female
  Weight: 83 kg

DRUGS (2)
  1. FOSAMAX [Suspect]
     Indication: OSTEOPOROSIS
     Route: 048
     Dates: start: 20050301, end: 20060701
  2. FOSAMAX [Suspect]
     Indication: OSTEOPENIA
     Route: 048
     Dates: start: 20050301, end: 20060701

REACTIONS (36)
  - DEPRESSION [None]
  - GASTROOESOPHAGEAL REFLUX DISEASE [None]
  - URINARY TRACT INFECTION [None]
  - TOOTHACHE [None]
  - PEPTIC ULCER [None]
  - BLADDER DISORDER [None]
  - PULPITIS DENTAL [None]
  - ANAL PRURITUS [None]
  - HERPES VIRUS INFECTION [None]
  - ANXIETY [None]
  - CONSTIPATION [None]
  - DENTAL CARIES [None]
  - HYPOCHOLESTEROLAEMIA [None]
  - HYPOTHYROIDISM [None]
  - HYPERTENSION [None]
  - MENTAL DISORDER [None]
  - PERIODONTITIS [None]
  - CERUMEN IMPACTION [None]
  - HYPOACUSIS [None]
  - WEIGHT INCREASED [None]
  - URGE INCONTINENCE [None]
  - INSOMNIA [None]
  - OSTEONECROSIS OF JAW [None]
  - GALLBLADDER DISORDER [None]
  - FATIGUE [None]
  - RASH PRURITIC [None]
  - OPEN ANGLE GLAUCOMA [None]
  - OSTEOARTHRITIS [None]
  - GASTROINTESTINAL DISORDER [None]
  - TREATMENT NONCOMPLIANCE [None]
  - SEASONAL ALLERGY [None]
  - ARTHRALGIA [None]
  - NASOPHARYNGITIS [None]
  - EYE DISORDER [None]
  - OEDEMA PERIPHERAL [None]
  - AFFECTIVE DISORDER [None]
